FAERS Safety Report 10211259 (Version 1)
Quarter: 2014Q2

REPORT INFORMATION
  Report Type: Spontaneous
  Country: CA (occurrence: CA)
  Receive Date: 20140602
  Receipt Date: 20140602
  Transmission Date: 20141212
  Serious: Yes (Hospitalization)
  Sender: FDA-Public Use
  Company Number: CA-GLAXOSMITHKLINE-A1074407A

PATIENT
  Sex: Female
  Weight: 81.8 kg

DRUGS (2)
  1. ADVAIR HFA [Suspect]
     Indication: BRONCHOSPASM
     Dosage: 2PUFF TWICE PER DAY
     Route: 055
     Dates: start: 20140316
  2. VENTOLIN [Suspect]
     Indication: PRODUCT USED FOR UNKNOWN INDICATION
     Route: 065

REACTIONS (7)
  - Dyspnoea [Not Recovered/Not Resolved]
  - Pyrexia [Not Recovered/Not Resolved]
  - Nasopharyngitis [Not Recovered/Not Resolved]
  - Pulmonary pain [Not Recovered/Not Resolved]
  - Bronchospasm [Unknown]
  - Viral infection [Unknown]
  - Emphysema [Unknown]
